FAERS Safety Report 8259270-4 (Version None)
Quarter: 2012Q2

REPORT INFORMATION
  Report Type: 
  Country: None (occurrence: None)
  Receive Date: 20120404
  Receipt Date: 20120328
  Transmission Date: 20120825
  Serious: No
  Sender: FDA-Public Use
  Company Number: US-BAYER-2012-032394

PATIENT
  Age: 76 Year
  Sex: Female
  Weight: 49 kg

DRUGS (10)
  1. NIASPAN [Concomitant]
  2. FISH OIL [Concomitant]
  3. ASCORBIC ACID [Concomitant]
  4. VESICARE [Concomitant]
  5. COZAAR [Concomitant]
  6. CALCIUM MAGNESIUM [Concomitant]
  7. ALEVE (CAPLET) [Suspect]
     Indication: ARTHRITIS
     Dosage: 2 DF, TID
     Route: 048
     Dates: start: 20120227
  8. VITAMIN D [Concomitant]
  9. INACTIN [Concomitant]
  10. ZOCOR [Concomitant]

REACTIONS (1)
  - NO ADVERSE EVENT [None]
